FAERS Safety Report 9615935 (Version 1)
Quarter: 2013Q4

REPORT INFORMATION
  Report Type: Spontaneous
  Country: GB (occurrence: GB)
  Receive Date: 20131011
  Receipt Date: 20131011
  Transmission Date: 20140711
  Serious: Yes (Other)
  Sender: FDA-Public Use
  Company Number: GB-SA-2013SA101191

PATIENT
  Age: 37 Year
  Sex: Male

DRUGS (7)
  1. FABRAZYME [Suspect]
     Indication: FABRY^S DISEASE
     Route: 042
     Dates: start: 20131003
  2. FABRAZYME [Suspect]
     Indication: FABRY^S DISEASE
     Route: 042
     Dates: start: 20131003
  3. ANTIHISTAMINES [Concomitant]
     Indication: PREMEDICATION
     Route: 048
     Dates: start: 20131003
  4. LORATADINE [Concomitant]
  5. RAMIPRIL [Concomitant]
  6. PROPANOLOL [Concomitant]
  7. PARACETAMOL [Concomitant]

REACTIONS (5)
  - Pain in extremity [Recovered/Resolved]
  - Feeling cold [Recovered/Resolved]
  - Pallor [Recovered/Resolved]
  - Chills [Recovered/Resolved]
  - Body temperature decreased [Recovered/Resolved]
